FAERS Safety Report 7639084-6 (Version None)
Quarter: 2011Q3

REPORT INFORMATION
  Report Type: 
  Country: None (occurrence: None)
  Receive Date: 20110727
  Receipt Date: 20110715
  Transmission Date: 20111222
  Serious: Yes (Hospitalization, Other)
  Sender: FDA-Public Use
  Company Number: PHHY2011BR64274

PATIENT
  Sex: Female

DRUGS (2)
  1. HYGROTON [Suspect]
     Indication: HYPERTENSION
     Dosage: 1 DF, QD
  2. FORMOTEROL FUMARATE [Suspect]
     Indication: BRONCHITIS
     Dosage: 2 INHALATION A DAY WITH EACH CAPSULE
     Dates: end: 20110705

REACTIONS (4)
  - PNEUMONIA [None]
  - DYSPNOEA [None]
  - RESPIRATORY FAILURE [None]
  - CHRONIC OBSTRUCTIVE PULMONARY DISEASE [None]
